FAERS Safety Report 16897817 (Version 3)
Quarter: 2019Q4

REPORT INFORMATION
  Report Type: Report from Study
  Country: US (occurrence: US)
  Receive Date: 20191009
  Receipt Date: 20191030
  Transmission Date: 20200122
  Serious: Yes (Other)
  Sender: FDA-Public Use
  Company Number: US-UCBSA-2019031713

PATIENT
  Age: 33 Year
  Sex: Female

DRUGS (3)
  1. CERTOLIZUMAB PEGOL [Suspect]
     Active Substance: CERTOLIZUMAB PEGOL
     Indication: CROHN^S DISEASE
     Dosage: 400 MILLIGRAM, MONTHLY (QM)
     Dates: start: 20190221
  2. BABY ASPIRIN [Concomitant]
     Active Substance: ASPIRIN
     Indication: CROHN^S DISEASE
     Dosage: UNK
     Dates: start: 20190221
  3. PRENATAL [ASCORBIC ACID;FERROUS FUMARATE;FOLIC ACID;RETINOL] [Concomitant]
     Indication: PREGNANCY
     Dosage: 1 TABLET DAILY
     Dates: start: 201910

REACTIONS (3)
  - Maternal exposure during breast feeding [Unknown]
  - Maternal exposure during pregnancy [Unknown]
  - Anal fistula [Unknown]

NARRATIVE: CASE EVENT DATE: 20190221
